FAERS Safety Report 9662793 (Version 2)
Quarter: 2013Q4

REPORT INFORMATION
  Report Type: Spontaneous
  Country: US (occurrence: US)
  Receive Date: 20131031
  Receipt Date: 20131031
  Transmission Date: 20140711
  Serious: Yes (Hospitalization, Other)
  Sender: FDA-Public Use
  Company Number: US-NAPPMUNDI-USA-2011-0072153

PATIENT
  Age: 53 Year
  Sex: Male

DRUGS (7)
  1. OXYCONTIN (NDA 22-272) [Suspect]
     Indication: PHANTOM PAIN
     Dosage: 80 MG, QID
  2. FENTANYL [Suspect]
     Indication: PRODUCT USED FOR UNKNOWN INDICATION
     Dosage: 75 MCG, UNK
  3. OPANA [Suspect]
     Indication: BREAKTHROUGH PAIN
     Dosage: 5 MG, PRN
  4. METHADONE [Suspect]
     Indication: DRUG ABUSE
  5. HYDROCODONE [Suspect]
     Indication: DRUG ABUSE
  6. PERCOCET                           /00867901/ [Concomitant]
     Indication: PRODUCT USED FOR UNKNOWN INDICATION
  7. DURAGESIC                          /00070401/ [Concomitant]
     Indication: PRODUCT USED FOR UNKNOWN INDICATION

REACTIONS (5)
  - Overdose [Unknown]
  - Drug abuse [Unknown]
  - Respiratory failure [Recovered/Resolved]
  - Abnormal behaviour [Unknown]
  - Drug ineffective [Unknown]
